FAERS Safety Report 4338343-2 (Version None)
Quarter: 2004Q2

REPORT INFORMATION
  Report Type: 
  Country: None (occurrence: None)
  Receive Date: 20040409
  Receipt Date: 20040330
  Transmission Date: 20050107
  Serious: Yes (Hospitalization)
  Sender: FDA-Public Use
  Company Number: K200400481

PATIENT
  Age: 59 Year
  Sex: Male

DRUGS (9)
  1. ALTACE [Suspect]
     Dosage: ORAL
     Route: 048
     Dates: start: 20030529, end: 20030710
  2. KINERETIC (ANAKINRA) SOLUTION, 100MG [Suspect]
     Dosage: 100 MG, QD, SUBCUTANEOUS
     Route: 058
     Dates: start: 20030529, end: 20030701
  3. SECTRAL [Concomitant]
  4. PREDNISONE [Concomitant]
  5. PREVISCAN (FLUINDIONE) TABLET [Concomitant]
  6. PRAVASTATIN SODIUM [Concomitant]
  7. OGAST (LANSOPRAZOLE) CAPSULE [Concomitant]
  8. TARDYFERON /GFR/(FERROUS SULFATE) TABLET [Concomitant]
  9. NOVATREX ^LEDERLE^ (METHOTREXATE) TABLET [Concomitant]

REACTIONS (2)
  - ARTHRITIS BACTERIAL [None]
  - STAPHYLOCOCCAL INFECTION [None]
